FAERS Safety Report 8101478-2 (Version None)
Quarter: 2012Q1

REPORT INFORMATION
  Report Type: 
  Country: None (occurrence: None)
  Receive Date: 20120129
  Receipt Date: 20111021
  Transmission Date: 20120608
  Serious: No
  Sender: FDA-Public Use
  Company Number: US-ABBOTT-11P-163-0863084-00

PATIENT
  Sex: Male
  Weight: 53.572 kg

DRUGS (1)
  1. HUMIRA [Suspect]
     Indication: CROHN'S DISEASE
     Route: 058
     Dates: start: 20110501

REACTIONS (6)
  - MUCOUS STOOLS [None]
  - RECTAL HAEMORRHAGE [None]
  - HAEMATOCHEZIA [None]
  - CROHN'S DISEASE [None]
  - DRUG INEFFECTIVE [None]
  - BACK PAIN [None]
